FAERS Safety Report 17815306 (Version 1)
Quarter: 2020Q2

REPORT INFORMATION
  Report Type: Spontaneous
  Country: US (occurrence: US)
  Receive Date: 20200522
  Receipt Date: 20200522
  Transmission Date: 20200714
  Serious: No
  Sender: FDA-Public Use
  Company Number: US-BIOGEN-2017BI00397695

PATIENT
  Age: 52 Year
  Sex: Female

DRUGS (4)
  1. TECFIDERA [Suspect]
     Active Substance: DIMETHYL FUMARATE
     Route: 048
     Dates: start: 20170501
  2. TECFIDERA [Suspect]
     Active Substance: DIMETHYL FUMARATE
     Route: 048
     Dates: start: 20170421
  3. TECFIDERA [Suspect]
     Active Substance: DIMETHYL FUMARATE
     Route: 048
     Dates: start: 20200401
  4. TECFIDERA [Suspect]
     Active Substance: DIMETHYL FUMARATE
     Indication: MULTIPLE SCLEROSIS
     Route: 048
     Dates: start: 20170423, end: 20170430

REACTIONS (11)
  - Product dose omission [Unknown]
  - Pruritus [Unknown]
  - Vertigo [Unknown]
  - Multiple sclerosis relapse [Recovered/Resolved]
  - Burning sensation [Unknown]
  - Flushing [Unknown]
  - Ear pruritus [Unknown]
  - Joint dislocation [Unknown]
  - Headache [Unknown]
  - Gait disturbance [Unknown]
  - Oral discomfort [Unknown]

NARRATIVE: CASE EVENT DATE: 20170517
